FAERS Safety Report 5200351-7 (Version None)
Quarter: 2006Q4

REPORT INFORMATION
  Report Type: 
  Country: None (occurrence: None)
  Receive Date: 20061016
  Receipt Date: 20060718
  Transmission Date: 20070319
  Serious: No
  Sender: FDA-Public Use
  Company Number: 2006SP002735

PATIENT
  Age: 49 Year
  Sex: Female
  Weight: 81.6475 kg

DRUGS (3)
  1. LUNESTA [Suspect]
     Indication: INSOMNIA
     Dosage: 2 MG;HS;ORAL; 4 MG;HS;ORAL; 3 MG;HS;ORAL
     Route: 048
     Dates: start: 20060416, end: 20060601
  2. LUNESTA [Suspect]
     Indication: INSOMNIA
     Dosage: 2 MG;HS;ORAL; 4 MG;HS;ORAL; 3 MG;HS;ORAL
     Route: 048
     Dates: start: 20060601, end: 20060601
  3. LUNESTA [Suspect]
     Indication: INSOMNIA
     Dosage: 2 MG;HS;ORAL; 4 MG;HS;ORAL; 3 MG;HS;ORAL
     Route: 048
     Dates: start: 20060601, end: 20060601

REACTIONS (2)
  - DRUG INEFFECTIVE [None]
  - INSOMNIA [None]
